FAERS Safety Report 5554033-2 (Version None)
Quarter: 2007Q4

REPORT INFORMATION
  Report Type: 
  Country: None (occurrence: None)
  Receive Date: 20071213
  Receipt Date: 20070411
  Transmission Date: 20080405
  Serious: No
  Sender: FDA-Public Use
  Company Number: A0646819A

PATIENT

DRUGS (1)
  1. LEXIVA [Suspect]
     Indication: HIV INFECTION
     Route: 048

REACTIONS (1)
  - DRUG INEFFECTIVE [None]
